FAERS Safety Report 8377319-5 (Version None)
Quarter: 2012Q2

REPORT INFORMATION
  Report Type: 
  Country: None (occurrence: None)
  Receive Date: 20120522
  Receipt Date: 20120509
  Transmission Date: 20120825
  Serious: No
  Sender: FDA-Public Use
  Company Number: US-ASTRAZENECA-2012SE30132

PATIENT
  Age: 73 Year
  Sex: Female

DRUGS (1)
  1. SEROQUEL [Suspect]
     Indication: BIPOLAR DISORDER
     Route: 048

REACTIONS (5)
  - VISUAL IMPAIRMENT [None]
  - CATARACT [None]
  - PSYCHOMOTOR HYPERACTIVITY [None]
  - FALL [None]
  - PAIN [None]
